FAERS Safety Report 7712260-X (Version None)
Quarter: 2011Q3

REPORT INFORMATION
  Report Type: 
  Country: None (occurrence: None)
  Receive Date: 20110826
  Receipt Date: 20110819
  Transmission Date: 20111222
  Serious: Yes (Other)
  Sender: FDA-Public Use
  Company Number: US-PFIZER INC-2011193808

PATIENT
  Sex: Female

DRUGS (4)
  1. VIOXX [Suspect]
  2. CELEBREX [Suspect]
  3. SPIRIVA [Suspect]
  4. ADVAIR DISKUS 100/50 [Suspect]

REACTIONS (2)
  - BLOOD PRESSURE INCREASED [None]
  - VISUAL IMPAIRMENT [None]
